FAERS Safety Report 6208160-7 (Version None)
Quarter: 2009Q2

REPORT INFORMATION
  Report Type: 
  Country: None (occurrence: None)
  Receive Date: 20090529
  Receipt Date: 20090521
  Transmission Date: 20091009
  Serious: Yes (Hospitalization, Other)
  Sender: FDA-Public Use
  Company Number: CN-BAYER-200921430GPV

PATIENT
  Age: 56 Year
  Sex: Male
  Weight: 70 kg

DRUGS (3)
  1. AVELOX [Suspect]
     Indication: BRONCHIECTASIS
     Dosage: TOTAL DAILY DOSE: 400 MG  UNIT DOSE: 400 MG
     Route: 042
     Dates: start: 20090415, end: 20090421
  2. AMBROXOL [Concomitant]
     Indication: BRONCHIECTASIS
     Dosage: TOTAL DAILY DOSE: 30 MG  UNIT DOSE: 30 MG
     Route: 065
     Dates: start: 20090415, end: 20090421
  3. POLYGAM S/D [Concomitant]
     Indication: DRUG USE FOR UNKNOWN INDICATION
     Dosage: TOTAL DAILY DOSE: 50 ML  UNIT DOSE: 50 MG
     Route: 042
     Dates: start: 20090415, end: 20090415

REACTIONS (3)
  - BONE DISORDER [None]
  - GASTROINTESTINAL DISORDER [None]
  - RENAL FAILURE ACUTE [None]
